FAERS Safety Report 8813099 (Version 1)
Quarter: 2012Q4

REPORT INFORMATION
  Report Type: 
  Country: US (occurrence: US)
  Receive Date: 20120927
  Receipt Date: 20120927
  Transmission Date: 20130627
  Serious: No
  Sender: FDA-Public Use
  Company Number: US-AMGEN-USASP2012052033

PATIENT
  Age: 72 Year
  Sex: Female

DRUGS (4)
  1. PROLIA [Suspect]
     Indication: OSTEOPOROSIS POSTMENOPAUSAL
     Dosage: 60 mg, UNK
     Dates: start: 2011
  2. CALCIUM WITH VITAMIN D [Concomitant]
     Dosage: UNK UNK, qd
  3. HUMIRA [Concomitant]
     Dosage: UNK
  4. B12 [Concomitant]
     Dosage: UNK

REACTIONS (1)
  - Macular degeneration [Not Recovered/Not Resolved]
